FAERS Safety Report 7959110-4 (Version None)
Quarter: 2011Q4

REPORT INFORMATION
  Report Type: 
  Country: None (occurrence: None)
  Receive Date: 20111206
  Receipt Date: 20111206
  Transmission Date: 20120403
  Serious: Yes (Other)
  Sender: FDA-Public Use
  Company Number: None

PATIENT
  Age: 31 Year
  Sex: Female
  Weight: 67.131 kg

DRUGS (1)
  1. BOTOX [Suspect]
     Indication: SKIN COSMETIC PROCEDURE
     Dates: start: 20090721, end: 20090721

REACTIONS (6)
  - DISTURBANCE IN ATTENTION [None]
  - HEADACHE [None]
  - NECK PAIN [None]
  - SINUS DISORDER [None]
  - VISION BLURRED [None]
  - MUSCULOSKELETAL PAIN [None]
